FAERS Safety Report 9388790 (Version 1)
Quarter: 2013Q3

REPORT INFORMATION
  Report Type: Spontaneous
  Country: FR (occurrence: FR)
  Receive Date: 20130708
  Receipt Date: 20130708
  Transmission Date: 20140515
  Serious: Yes (Hospitalization)
  Sender: FDA-Public Use
  Company Number: PHHY2013FR071345

PATIENT
  Age: 62 Year
  Sex: Male

DRUGS (7)
  1. ANAFRANIL [Suspect]
     Indication: DEPRESSION
     Dosage: 75 MG, QD (ONCE A DAY IN EVENING)
     Route: 048
     Dates: end: 20130410
  2. SPIRONOLACTONE [Suspect]
     Indication: HYPERTENSION
     Dosage: 25 MG, A DAY
     Route: 048
     Dates: end: 20130410
  3. FLUDEX [Suspect]
     Indication: HYPERTENSION
     Dosage: 2.5 MG, A DAY
     Route: 048
     Dates: end: 20130410
  4. METFORMIN HYDROCHLORIDE [Concomitant]
     Indication: TYPE 2 DIABETES MELLITUS
     Dosage: 1 (500) DF, BID (ONE DOSAGE FORM IN THE)
  5. ATENOLOL [Concomitant]
     Indication: HYPERTENSION
     Dosage: 100 MG, QD (A DAY IN MORNING)
  6. FENOFIBRATE [Concomitant]
     Dosage: 67 MG, QD (IN THE MORNING)
  7. KARDEGIC [Concomitant]
     Dosage: 75 MG, QD (AT NOON)

REACTIONS (2)
  - Hyponatraemia [Recovered/Resolved]
  - Malaise [Recovered/Resolved]
